FAERS Safety Report 8997462 (Version 1)
Quarter: 2013Q1

REPORT INFORMATION
  Report Type: Spontaneous
  Country: US (occurrence: US)
  Receive Date: 20130104
  Receipt Date: 20130104
  Transmission Date: 20140127
  Serious: Yes (Hospitalization, Other)
  Sender: FDA-Public Use
  Company Number: US-MERCK-1301USA001208

PATIENT
  Age: 44 Year
  Sex: Male

DRUGS (4)
  1. SINGULAIR [Suspect]
     Dosage: 1 UNIT PER DAY
  2. SEREVENT [Suspect]
     Dosage: 100MCG TWICE PRE DAY
     Route: 055
  3. FLUTICASONE PROPIONATE [Concomitant]
     Route: 055
  4. LEVOFLOXACIN [Concomitant]
     Route: 048

REACTIONS (2)
  - Rhabdomyolysis [Unknown]
  - Arthralgia [Unknown]
